FAERS Safety Report 10908223 (Version 3)
Quarter: 2016Q2

REPORT INFORMATION
  Report Type: Spontaneous
  Country: US (occurrence: US)
  Receive Date: 20150312
  Receipt Date: 20160412
  Transmission Date: 20160815
  Serious: No
  Sender: FDA-Public Use
  Company Number: US-INCYTE CORPORATION-2015IN000680

PATIENT
  Sex: Female
  Weight: 75.28 kg

DRUGS (15)
  1. AMLODIPINE [Concomitant]
     Active Substance: AMLODIPINE BESYLATE
  2. VITAMIN D                          /00107901/ [Concomitant]
     Active Substance: ERGOCALCIFEROL
  3. JAKAFI [Suspect]
     Active Substance: RUXOLITINIB
     Indication: POLYCYTHAEMIA VERA
     Dosage: 5 MG, BID
     Route: 048
  4. CALCIUM [Concomitant]
     Active Substance: CALCIUM
  5. METAMUCIL                          /00091301/ [Concomitant]
  6. FISH OIL [Concomitant]
     Active Substance: FISH OIL
  7. NIACIN. [Concomitant]
     Active Substance: NIACIN
  8. JAKAFI [Suspect]
     Active Substance: RUXOLITINIB
     Dosage: 10 MG, BID
     Route: 048
     Dates: start: 201412, end: 201502
  9. JAKAFI [Suspect]
     Active Substance: RUXOLITINIB
     Dosage: 15 MG, BID
     Route: 048
     Dates: start: 201502
  10. DULCOLAX (BISACODYL) [Concomitant]
     Active Substance: BISACODYL
  11. ASPIRIN. [Concomitant]
     Active Substance: ASPIRIN
  12. MULTIVITAMIN                       /00097801/ [Concomitant]
     Active Substance: VITAMINS
  13. JAKAFI [Suspect]
     Active Substance: RUXOLITINIB
     Dosage: 20 MG, BID
     Route: 048
     Dates: start: 20150116
  14. FLAXSEED [Concomitant]
     Active Substance: FLAX SEED
  15. VITAMIN C [Concomitant]
     Active Substance: ASCORBIC ACID

REACTIONS (3)
  - Weight increased [Unknown]
  - Red blood cell count increased [Unknown]
  - Platelet disorder [Recovered/Resolved]
